FAERS Safety Report 26028416 (Version 1)
Quarter: 2025Q4

REPORT INFORMATION
  Report Type: Report from Study
  Country: US (occurrence: US)
  Receive Date: 20251111
  Receipt Date: 20251111
  Transmission Date: 20260117
  Serious: Yes (Other)
  Sender: ABBVIE
  Company Number: US-ABBVIE-6430394

PATIENT
  Age: 60 Year
  Sex: Female

DRUGS (2)
  1. SKYRIZI [Suspect]
     Active Substance: RISANKIZUMAB-RZAA
     Indication: Psoriasis
     Dosage: UNKNOWN
     Route: 058
     Dates: start: 202110, end: 202507
  2. SKYRIZI [Suspect]
     Active Substance: RISANKIZUMAB-RZAA
     Dosage: UNKNOWN
     Route: 058
     Dates: start: 202507

REACTIONS (10)
  - Breast cancer [Unknown]
  - Device loosening [Not Recovered/Not Resolved]
  - Nervousness [Unknown]
  - Irritability [Unknown]
  - Skin fissures [Unknown]
  - Fatigue [Unknown]
  - White blood cell count increased [Unknown]
  - Psoriasis [Unknown]
  - Gastritis [Unknown]
  - Device breakage [Not Recovered/Not Resolved]

NARRATIVE: CASE EVENT DATE: 20250401
